FAERS Safety Report 15927248 (Version 1)
Quarter: 2019Q1

REPORT INFORMATION
  Report Type: Spontaneous
  Country: US (occurrence: US)
  Receive Date: 20190206
  Receipt Date: 20190206
  Transmission Date: 20190417
  Serious: No
  Sender: FDA-Public Use
  Company Number: US-009507513-1901USA012203

PATIENT

DRUGS (1)
  1. NEXPLANON [Suspect]
     Active Substance: ETONOGESTREL
     Dosage: 1 IMPLANT IN AN UNSPECIFIED ARM
     Route: 059

REACTIONS (3)
  - No adverse event [Unknown]
  - Expired device used [Unknown]
  - Incorrect product administration duration [Unknown]
